FAERS Safety Report 11190354 (Version 2)
Quarter: 2015Q3

REPORT INFORMATION
  Report Type: Spontaneous
  Country: US (occurrence: US)
  Receive Date: 20150615
  Receipt Date: 20150706
  Transmission Date: 20151125
  Serious: Yes (Other)
  Sender: FDA-Public Use
  Company Number: US-BAYER-2015-332378

PATIENT
  Age: 38 Year
  Sex: Male
  Weight: 67.9 kg

DRUGS (9)
  1. HYDROMORPHONE [Suspect]
     Active Substance: HYDROMORPHONE
     Indication: PAIN
     Dosage: 2 MG, Q1H, PRN
     Route: 042
     Dates: start: 20150317, end: 20150328
  2. HEPARIN [Suspect]
     Active Substance: HEPARIN SODIUM
     Indication: THROMBOSIS PROPHYLAXIS
     Dosage: 5000 UNITS, TID
     Route: 058
     Dates: start: 20150317, end: 20150417
  3. FAMOTIDINE. [Suspect]
     Active Substance: FAMOTIDINE
     Indication: NAUSEA
     Dosage: 20 MG, Q12H
     Route: 042
     Dates: start: 20150324, end: 20150405
  4. DILAUDID [Concomitant]
     Active Substance: HYDROMORPHONE HYDROCHLORIDE
  5. DAPTOMYCIN. [Suspect]
     Active Substance: DAPTOMYCIN
     Indication: OSTEOMYELITIS
     Dosage: 400 MG, Q24H
     Route: 042
     Dates: start: 20150320, end: 20150409
  6. MORPHINE [Suspect]
     Active Substance: MORPHINE
     Indication: PAIN
     Dosage: 20 MG, Q12H
     Route: 048
     Dates: start: 20150320, end: 20150417
  7. FAMOTIDINE. [Suspect]
     Active Substance: FAMOTIDINE
     Indication: PAIN
  8. ONDANSETRON [Suspect]
     Active Substance: ONDANSETRON
     Indication: NAUSEA
     Dosage: 4 MG PER 6 HOURS AS NEEDED
     Route: 042
     Dates: start: 20150317, end: 20150417
  9. CLARITIN [Suspect]
     Active Substance: LORATADINE
     Indication: HYPERSENSITIVITY
     Dosage: 10 MG, Q24H
     Route: 048
     Dates: start: 20150324, end: 20150417

REACTIONS (4)
  - Generalised tonic-clonic seizure [Recovered/Resolved]
  - Blood magnesium decreased [Recovered/Resolved]
  - Vomiting [Unknown]
  - Hyperhidrosis [Unknown]

NARRATIVE: CASE EVENT DATE: 20150328
